FAERS Safety Report 5207225-6 (Version None)
Quarter: 2007Q1

REPORT INFORMATION
  Report Type: 
  Country: None (occurrence: None)
  Receive Date: 20070112
  Receipt Date: 20070102
  Transmission Date: 20070707
  Serious: Yes (Hospitalization)
  Sender: FDA-Public Use
  Company Number: 2007CG00012

PATIENT
  Age: 81 Year
  Sex: Female

DRUGS (11)
  1. OMEPRAZOLE [Suspect]
     Route: 048
     Dates: start: 20060728, end: 20060919
  2. FOSAMAX [Suspect]
     Indication: OSTEOPOROSIS
     Route: 048
     Dates: start: 20060728, end: 20060919
  3. DIFFU K [Suspect]
     Indication: HYPOKALAEMIA
     Route: 048
     Dates: start: 20060728, end: 20060901
  4. DAPSONE [Suspect]
     Indication: PEMPHIGUS
     Route: 048
     Dates: start: 20060804, end: 20060912
  5. DAPSONE [Suspect]
     Route: 048
     Dates: start: 20060914, end: 20060919
  6. CORTANCYL [Suspect]
     Indication: PEMPHIGUS
     Route: 048
     Dates: start: 20060728, end: 20060912
  7. CORTANCYL [Suspect]
     Route: 048
     Dates: start: 20060914
  8. LASIX [Concomitant]
     Indication: HYPERTENSIVE CARDIOMYOPATHY
  9. TILDIEM [Concomitant]
     Route: 048
  10. DIGOXIN [Concomitant]
     Route: 048
  11. SINTROM [Concomitant]
     Route: 048

REACTIONS (1)
  - DRUG RASH WITH EOSINOPHILIA AND SYSTEMIC SYMPTOMS [None]
